FAERS Safety Report 10247755 (Version 2)
Quarter: 2014Q3

REPORT INFORMATION
  Report Type: Report from Study
  Country: BR (occurrence: BR)
  Receive Date: 20140619
  Receipt Date: 20140825
  Transmission Date: 20150326
  Serious: Yes (Other)
  Sender: FDA-Public Use
  Company Number: PHHY2014BR076173

PATIENT
  Sex: Female
  Weight: 55 kg

DRUGS (2)
  1. DIOVAN AMLO FIX [Suspect]
     Active Substance: AMLODIPINE\VALSARTAN
     Indication: HYPERTENSION
     Dosage: 1 DF IN THE MORNING
     Route: 048
     Dates: start: 201202
  2. DIOVAN AMLO FIX [Suspect]
     Active Substance: AMLODIPINE\VALSARTAN
     Dosage: 0.5 DF
     Route: 048

REACTIONS (6)
  - Hypertension [Recovering/Resolving]
  - Malaise [Recovering/Resolving]
  - Dizziness [Recovering/Resolving]
  - Cataract [Recovering/Resolving]
  - Cardiac disorder [Recovering/Resolving]
  - Wrong technique in drug usage process [Recovering/Resolving]
